FAERS Safety Report 6903967-2 (Version None)
Quarter: 2010Q3

REPORT INFORMATION
  Report Type: 
  Country: None (occurrence: None)
  Receive Date: 20100804
  Receipt Date: 20090217
  Transmission Date: 20110219
  Serious: No
  Sender: FDA-Public Use
  Company Number: US-PFIZER INC-2009172869

PATIENT
  Sex: Female

DRUGS (5)
  1. LYRICA [Suspect]
     Indication: FIBROMYALGIA
     Dosage: 150 MG, UNK
     Route: 048
     Dates: start: 20090216
  2. NEBIVOLOL [Concomitant]
     Dosage: UNK
  3. COZAAR [Concomitant]
     Dosage: UNK
  4. ALBUTEROL [Concomitant]
     Dosage: UNK
  5. SALBUTAMOL [Concomitant]
     Dosage: UNK

REACTIONS (1)
  - DIZZINESS [None]
